FAERS Safety Report 7901544-8 (Version None)
Quarter: 2011Q4

REPORT INFORMATION
  Report Type: 
  Country: None (occurrence: None)
  Receive Date: 20111108
  Receipt Date: 20111103
  Transmission Date: 20120403
  Serious: Yes (Other)
  Sender: FDA-Public Use
  Company Number: US-ROCHE-1009506

PATIENT
  Sex: Female
  Weight: 72.64 kg

DRUGS (5)
  1. LITHIUM [Suspect]
     Dates: start: 20110101
  2. LITHIUM [Suspect]
     Indication: BIPOLAR DISORDER
     Dates: start: 20110101, end: 20110101
  3. PROZAC [Suspect]
     Indication: BIPOLAR DISORDER
     Dates: start: 20110101
  4. KLONOPIN [Suspect]
     Indication: BIPOLAR DISORDER
     Dates: start: 20100101
  5. LYBREL [Suspect]
     Indication: PAIN

REACTIONS (1)
  - METRORRHAGIA [None]
